FAERS Safety Report 11699122 (Version 2)
Quarter: 2015Q4

REPORT INFORMATION
  Report Type: Spontaneous
  Country: US (occurrence: US)
  Receive Date: 20151104
  Receipt Date: 20151202
  Transmission Date: 20160304
  Serious: Yes (Other)
  Sender: FDA-Public Use
  Company Number: US-CUMBERLAND PHARMACEUTICALS INC.-1043752

PATIENT
  Age: 34 Year
  Sex: Female

DRUGS (1)
  1. CALDOLOR [Suspect]
     Active Substance: IBUPROFEN
     Route: 042
     Dates: start: 20150801

REACTIONS (3)
  - Infusion site pain [None]
  - Compartment syndrome [None]
  - Thrombosis [None]
